FAERS Safety Report 21595762 (Version 1)
Quarter: 2022Q4

REPORT INFORMATION
  Report Type: Spontaneous
  Country: US (occurrence: US)
  Receive Date: 20221115
  Receipt Date: 20221115
  Transmission Date: 20230113
  Serious: No
  Sender: FDA-Public Use
  Company Number: US-PFIZER INC-202201293776

PATIENT
  Age: 77 Year
  Sex: Female

DRUGS (5)
  1. RAPAMUNE [Interacting]
     Active Substance: SIROLIMUS
     Indication: Renal transplant
     Dosage: 1 MG
     Dates: start: 2009
  2. RAPAMUNE [Interacting]
     Active Substance: SIROLIMUS
     Dosage: 0.5 MG
  3. AMIODARONE HYDROCHLORIDE [Interacting]
     Active Substance: AMIODARONE HYDROCHLORIDE
     Indication: Atrial fibrillation
     Dosage: UNK
     Route: 042
     Dates: start: 202207
  4. AMIODARONE [Interacting]
     Active Substance: AMIODARONE
     Indication: Atrial fibrillation
     Dosage: UNK, 3X/DAY
  5. AMIODARONE [Interacting]
     Active Substance: AMIODARONE
     Dosage: UNK, 2X/DAY

REACTIONS (2)
  - Drug interaction [Recovering/Resolving]
  - Drug level increased [Recovering/Resolving]
